FAERS Safety Report 20000283 (Version 2)
Quarter: 2021Q4

REPORT INFORMATION
  Report Type: Spontaneous
  Country: GB (occurrence: GB)
  Receive Date: 20211027
  Receipt Date: 20211030
  Transmission Date: 20220304
  Serious: Yes (Other)
  Sender: FDA-Public Use
  Company Number: GB-MHRA-EYC 00263285

PATIENT
  Age: 36 Year
  Sex: Female
  Weight: 112 kg

DRUGS (2)
  1. NAPROXEN [Suspect]
     Active Substance: NAPROXEN
     Indication: Ill-defined disorder
     Dosage: 200 MILLIGRAM, 3 TIMES A DAY
     Route: 065
     Dates: start: 201905, end: 201908
  2. ACETAMINOPHEN [Concomitant]
     Active Substance: ACETAMINOPHEN
     Indication: Ill-defined disorder
     Dosage: UNK
     Route: 065

REACTIONS (7)
  - Pain [Unknown]
  - Swelling [Unknown]
  - Dysuria [Unknown]
  - Malaise [Unknown]
  - Stress ulcer [Unknown]
  - Vulvovaginal pain [Recovered/Resolved with Sequelae]
  - Vulval ulceration [Recovered/Resolved with Sequelae]
